FAERS Safety Report 19941740 (Version 1)
Quarter: 2021Q4

REPORT INFORMATION
  Report Type: Spontaneous
  Country: US (occurrence: US)
  Receive Date: 20211008
  Receipt Date: 20211008
  Transmission Date: 20220303
  Serious: Yes (Death)
  Sender: FDA-Public Use
  Company Number: None

PATIENT
  Age: 96 Year
  Sex: Male
  Weight: 108 kg

DRUGS (1)
  1. REGEN-COV [Suspect]
     Active Substance: CASIRIVIMAB\IMDEVIMAB
     Indication: COVID-19
     Dosage: ?          OTHER FREQUENCY:ONCE OVER 30 MIN;
     Route: 042
     Dates: start: 20210923, end: 20210923

REACTIONS (12)
  - Syncope [None]
  - Fall [None]
  - Prostate cancer metastatic [None]
  - Head injury [None]
  - Haematoma [None]
  - Leukocytosis [None]
  - Delirium [None]
  - Urinary tract infection [None]
  - Hypernatraemia [None]
  - Pulse absent [None]
  - Hypophagia [None]
  - Mental status changes [None]

NARRATIVE: CASE EVENT DATE: 20210926
